FAERS Safety Report 10006542 (Version 4)
Quarter: 2014Q4

REPORT INFORMATION
  Report Type: Spontaneous
  Country: US (occurrence: US)
  Receive Date: 20140313
  Receipt Date: 20141103
  Transmission Date: 20150528
  Serious: Yes (Hospitalization)
  Sender: FDA-Public Use
  Company Number: US-BAYER-2014-036105

PATIENT
  Age: 26 Year
  Sex: Female
  Weight: 90.7 kg

DRUGS (4)
  1. MIRENA [Suspect]
     Active Substance: LEVONORGESTREL
     Indication: CONTRACEPTION
     Dosage: 20 MCG/24HR, CONT
     Route: 015
     Dates: start: 20061009, end: 20101104
  2. TUSSIN CF [Concomitant]
     Active Substance: DEXTROMETHORPHAN HYDROBROMIDE\GUAIFENESIN\PHENYLEPHRINE HYDROCHLORIDE
     Indication: NASAL CONGESTION
  3. VICKS NYQUIL [Concomitant]
     Active Substance: ACETAMINOPHEN\DEXTROMETHORPHAN HYDROBROMIDE\DOXYLAMINE SUCCINATE
  4. TUSSIN CF [Concomitant]
     Active Substance: DEXTROMETHORPHAN HYDROBROMIDE\GUAIFENESIN\PHENYLEPHRINE HYDROCHLORIDE
     Indication: COUGH

REACTIONS (10)
  - Infertility female [None]
  - Uterine perforation [None]
  - Device issue [None]
  - Emotional distress [None]
  - Off label use [None]
  - Menorrhagia [None]
  - Pain [None]
  - Depression [None]
  - Anxiety [None]
  - Injury [None]

NARRATIVE: CASE EVENT DATE: 2006
